FAERS Safety Report 22049052 (Version 3)
Quarter: 2023Q2

REPORT INFORMATION
  Report Type: Spontaneous
  Country: US (occurrence: US)
  Receive Date: 20230301
  Receipt Date: 20230419
  Transmission Date: 20230721
  Serious: No
  Sender: FDA-Public Use
  Company Number: US-PFIZER INC-PV202300034777

PATIENT
  Age: 50 Year
  Sex: Female

DRUGS (1)
  1. IBRANCE [Suspect]
     Active Substance: PALBOCICLIB
     Dosage: 125 MG

REACTIONS (6)
  - Neoplasm progression [Not Recovered/Not Resolved]
  - Stomatitis [Unknown]
  - Throat irritation [Unknown]
  - Fatigue [Unknown]
  - Pain [Unknown]
  - Blister [Unknown]
